FAERS Safety Report 9812241 (Version 1)
Quarter: 2014Q1

REPORT INFORMATION
  Report Type: Report from Study
  Country: US (occurrence: US)
  Receive Date: 20140113
  Receipt Date: 20140113
  Transmission Date: 20141002
  Serious: Yes (Hospitalization)
  Sender: FDA-Public Use
  Company Number: US-ROCHE-1330530

PATIENT
  Sex: Female

DRUGS (5)
  1. XELODA [Suspect]
     Indication: PANCREATIC CARCINOMA
     Route: 048
  2. XELODA [Suspect]
     Indication: MALIGNANT ASCITES
  3. PHENERGAN [Concomitant]
     Route: 065
  4. LORATAB [Concomitant]
     Route: 065
  5. ALPRAZOLAM [Concomitant]
     Route: 065

REACTIONS (5)
  - Pyrexia [Unknown]
  - Pleural effusion [Unknown]
  - Ascites [Unknown]
  - Peripancreatic fluid collection [Unknown]
  - Disease progression [Unknown]
